FAERS Safety Report 12558567 (Version 3)
Quarter: 2016Q3

REPORT INFORMATION
  Report Type: Report from Study
  Country: FR (occurrence: FR)
  Receive Date: 20160714
  Receipt Date: 20160825
  Transmission Date: 20161109
  Serious: Yes (Death, Life-Threatening, Hospitalization)
  Sender: FDA-Public Use
  Company Number: PHHO2016FR008879

PATIENT
  Age: 43 Year
  Sex: Female
  Weight: 52 kg

DRUGS (3)
  1. TRAMETINIB [Suspect]
     Active Substance: TRAMETINIB
     Indication: METASTATIC MALIGNANT MELANOMA
     Dosage: 2 MG, QD
     Route: 048
     Dates: start: 20160320, end: 20160629
  2. TRAMADOL. [Concomitant]
     Active Substance: TRAMADOL
     Indication: PAIN
     Dosage: MG PRN
     Route: 065
     Dates: start: 20160623
  3. DABRAFENIB [Suspect]
     Active Substance: DABRAFENIB
     Indication: METASTATIC MALIGNANT MELANOMA
     Dosage: 150 MG, BID
     Route: 048
     Dates: start: 20160308, end: 20160629

REACTIONS (5)
  - Malignant neoplasm progression [Fatal]
  - Intra-abdominal haematoma [Recovered/Resolved]
  - General physical health deterioration [Fatal]
  - Endometrial thickening [Not Recovered/Not Resolved]
  - Metastases to ovary [Not Recovered/Not Resolved]

NARRATIVE: CASE EVENT DATE: 20160519
